FAERS Safety Report 9236729 (Version 2)
Quarter: 2013Q2

REPORT INFORMATION
  Report Type: Spontaneous
  Country: JP (occurrence: JP)
  Receive Date: 20130417
  Receipt Date: 20130625
  Transmission Date: 20140414
  Serious: Yes (Hospitalization)
  Sender: FDA-Public Use
  Company Number: JP-ROCHE-1215345

PATIENT
  Age: 70 Year
  Sex: Female
  Weight: 42 kg

DRUGS (13)
  1. AVASTIN [Suspect]
     Indication: RECTAL CANCER METASTATIC
     Route: 041
     Dates: start: 20130304, end: 20130304
  2. XELODA [Suspect]
     Indication: RECTAL CANCER METASTATIC
     Route: 048
     Dates: start: 20130304, end: 20130318
  3. ELPLAT [Concomitant]
     Indication: RECTAL CANCER METASTATIC
     Dosage: DOSAGE IS UNCERTAIN.
     Route: 041
     Dates: start: 20130304, end: 20130304
  4. ALOXI [Concomitant]
     Indication: PROPHYLAXIS OF NAUSEA AND VOMITING
     Route: 041
     Dates: start: 20130304, end: 20130304
  5. DECADRON [Concomitant]
     Indication: ABDOMINAL DISCOMFORT
     Route: 041
     Dates: start: 20130304, end: 20130304
  6. DECADRON [Concomitant]
     Indication: ABDOMINAL DISCOMFORT
     Route: 041
     Dates: start: 20130304, end: 20130304
  7. MINOPHAGEN C [Concomitant]
     Indication: LIVER DISORDER
     Route: 041
     Dates: start: 20130304, end: 20130304
  8. PRIMPERAN (JAPAN) [Concomitant]
     Indication: PROPHYLAXIS OF NAUSEA AND VOMITING
     Route: 041
     Dates: start: 20130304, end: 20130304
  9. EMEND [Concomitant]
     Indication: PROPHYLAXIS OF NAUSEA AND VOMITING
     Route: 048
     Dates: start: 20130304, end: 20130304
  10. EMEND [Concomitant]
     Indication: PROPHYLAXIS OF NAUSEA AND VOMITING
     Route: 048
     Dates: start: 20130305, end: 20130306
  11. PREDONINE [Concomitant]
     Indication: ABDOMINAL DISCOMFORT
     Route: 048
     Dates: start: 20130304, end: 20130317
  12. RINGEREAZE [Concomitant]
     Indication: CANCER PAIN
     Route: 048
     Dates: start: 20130304
  13. ETISEDAN [Concomitant]
     Indication: INSOMNIA
     Route: 048
     Dates: start: 20130304

REACTIONS (2)
  - Gastrointestinal perforation [Not Recovered/Not Resolved]
  - Impaired healing [Not Recovered/Not Resolved]
